FAERS Safety Report 9095350 (Version 2)
Quarter: 2013Q2

REPORT INFORMATION
  Report Type: Spontaneous
  Country: GB (occurrence: GB)
  Receive Date: 20130220
  Receipt Date: 20130509
  Transmission Date: 20140414
  Serious: Yes (Other)
  Sender: FDA-Public Use
  Company Number: GB-MERCK-1302GBR003401

PATIENT
  Age: 71 Year
  Sex: Male

DRUGS (3)
  1. JANUVIA [Suspect]
     Indication: HYPERGLYCAEMIA
     Dosage: 100 MG, QD
     Route: 048
  2. JANUVIA [Suspect]
     Dosage: 100 MG, QD
     Route: 048
  3. JANUVIA [Suspect]
     Dosage: 100 MG, QD
     Route: 048
     Dates: start: 201303

REACTIONS (2)
  - Epistaxis [Recovered/Resolved]
  - Epistaxis [Recovered/Resolved]
